FAERS Safety Report 8466128-4 (Version None)
Quarter: 2012Q2

REPORT INFORMATION
  Report Type: 
  Country: None (occurrence: None)
  Receive Date: 20120626
  Receipt Date: 20120614
  Transmission Date: 20120825
  Serious: Yes (Other)
  Sender: FDA-Public Use
  Company Number: AR-AMGEN-ARGSP2012038122

PATIENT
  Age: 68 Year
  Sex: Female

DRUGS (2)
  1. ALPLAX [Concomitant]
     Dosage: UNK
     Route: 048
  2. ENBREL [Suspect]
     Indication: RHEUMATOID ARTHRITIS
     Dosage: 25 MG, WEEKLY
     Route: 058
     Dates: start: 20091111, end: 20120301

REACTIONS (2)
  - INFECTED FISTULA [None]
  - ARTHRITIS [None]
